FAERS Safety Report 6232539-0 (Version None)
Quarter: 2009Q2

REPORT INFORMATION
  Report Type: 
  Country: None (occurrence: None)
  Receive Date: 20090617
  Receipt Date: 20090610
  Transmission Date: 20091009
  Serious: Yes (Hospitalization)
  Sender: FDA-Public Use
  Company Number: US-ELI_LILLY_AND_COMPANY-US200906003119

PATIENT
  Sex: Male

DRUGS (1)
  1. FORTEO [Suspect]
     Dosage: 20 UG, UNK
     Dates: end: 20090601

REACTIONS (3)
  - BLOOD PARATHYROID HORMONE INCREASED [None]
  - CREATININE RENAL CLEARANCE DECREASED [None]
  - HOSPITALISATION [None]
